FAERS Safety Report 8343038-4 (Version None)
Quarter: 2012Q2

REPORT INFORMATION
  Report Type: 
  Country: None (occurrence: None)
  Receive Date: 20120508
  Receipt Date: 20120423
  Transmission Date: 20120825
  Serious: Yes (Death)
  Sender: FDA-Public Use
  Company Number: PHHY2008KR11430

PATIENT
  Sex: Male
  Weight: 70 kg

DRUGS (1)
  1. EXJADE [Suspect]
     Indication: MYELODYSPLASTIC SYNDROME
     Dosage: 20 MG/KG, UNK
     Route: 048
     Dates: start: 20080129, end: 20080419

REACTIONS (3)
  - SEPSIS [None]
  - SERUM FERRITIN ABNORMAL [None]
  - DISEASE PROGRESSION [None]
